FAERS Safety Report 17904733 (Version 1)
Quarter: 2020Q2

REPORT INFORMATION
  Report Type: Spontaneous
  Country: US (occurrence: US)
  Receive Date: 20200616
  Receipt Date: 20200616
  Transmission Date: 20200714
  Serious: No
  Sender: FDA-Public Use
  Company Number: US-ROCHE-2530455

PATIENT
  Sex: Male
  Weight: 195 kg

DRUGS (2)
  1. ACTEMRA [Suspect]
     Active Substance: TOCILIZUMAB
     Indication: TEMPORAL ARTERITIS
     Dosage: ONCE A MONTH IV INFUSION WEIGHT BASED ;ONGOING: YES
     Route: 042
     Dates: start: 20190201
  2. LEVOTHYROXINE. [Concomitant]
     Active Substance: LEVOTHYROXINE
     Indication: HYPOTHYROIDISM
     Dosage: 150 MCG ONCE DAILY ;ONGOING: YES
     Route: 048

REACTIONS (8)
  - Hyperhidrosis [Not Recovered/Not Resolved]
  - Headache [Unknown]
  - Stress [Not Recovered/Not Resolved]
  - Ill-defined disorder [Not Recovered/Not Resolved]
  - Dyspnoea [Not Recovered/Not Resolved]
  - Palpitations [Unknown]
  - Irritability [Not Recovered/Not Resolved]
  - Dehydration [Unknown]
